FAERS Safety Report 23159896 (Version 3)
Quarter: 2024Q1

REPORT INFORMATION
  Report Type: Spontaneous
  Country: DK (occurrence: DK)
  Receive Date: 20231108
  Receipt Date: 20240117
  Transmission Date: 20240410
  Serious: Yes (Death, Hospitalization, Other)
  Sender: FDA-Public Use
  Company Number: DK-VERTEX PHARMACEUTICALS-2023-016685

PATIENT
  Sex: Female

DRUGS (1)
  1. ORKAMBI [Suspect]
     Active Substance: IVACAFTOR\LUMACAFTOR
     Indication: Cystic fibrosis
     Dosage: 1 DOSAGE FORM (150MG LUMACAFTOR/188MG IVACAFTOR), BID
     Route: 048

REACTIONS (7)
  - Brain herniation [Fatal]
  - Brain injury [Fatal]
  - Cardiac arrest [Fatal]
  - Subglottic laryngitis [Unknown]
  - Aspiration [Unknown]
  - Obstructive airways disorder [Unknown]
  - Increased viscosity of upper respiratory secretion [Unknown]

NARRATIVE: CASE EVENT DATE: 20230101
